FAERS Safety Report 7331534-8 (Version None)
Quarter: 2011Q1

REPORT INFORMATION
  Report Type: 
  Country: None (occurrence: None)
  Receive Date: 20110304
  Receipt Date: 20110222
  Transmission Date: 20110831
  Serious: Yes (Other)
  Sender: FDA-Public Use
  Company Number: BR-PFIZER INC-2011038359

PATIENT
  Age: 37 Year
  Sex: Female
  Weight: 60 kg

DRUGS (7)
  1. PRISTIQ [Suspect]
     Indication: DEPRESSION
  2. MERCILON CONTI [Concomitant]
     Indication: CONTRACEPTION
     Dosage: UNK
     Dates: start: 20100801
  3. PRISTIQ [Suspect]
     Indication: BIPOLAR DISORDER
  4. ARADOIS [Concomitant]
     Indication: BLOOD PRESSURE INCREASED
     Dosage: 1 AND HALF TABLET DAILY
     Dates: start: 20030101
  5. PRISTIQ [Suspect]
     Indication: ANXIETY
     Dosage: 50 MG, 1X/DAY
     Route: 048
     Dates: start: 20100101, end: 20100101
  6. SERTRALINE HYDROCHLORIDE [Suspect]
     Dosage: UNK
  7. TOPIRAMATE [Suspect]
     Indication: MIGRAINE
     Dosage: UNK
     Dates: end: 20110201

REACTIONS (7)
  - MALAISE [None]
  - DYSPNOEA [None]
  - BLOOD PRESSURE INCREASED [None]
  - CHEST PAIN [None]
  - HYPERSENSITIVITY [None]
  - HUNGER [None]
  - PARAESTHESIA [None]
